FAERS Safety Report 26209754 (Version 1)
Quarter: 2025Q4

REPORT INFORMATION
  Report Type: Spontaneous
  Country: EU (occurrence: EU)
  Receive Date: 20251229
  Receipt Date: 20251229
  Transmission Date: 20260118
  Serious: Yes (Other)
  Sender: PFIZER
  Company Number: None

PATIENT
  Age: 14 Year
  Sex: Male

DRUGS (5)
  1. LEUCOVORIN CALCIUM [Suspect]
     Active Substance: LEUCOVORIN CALCIUM
     Indication: Toxoplasmosis
     Dosage: 75 MG, 25 MG 3 TIMES A WEEK
     Route: 048
     Dates: start: 20251205, end: 20251213
  2. ZITHROMAX [Suspect]
     Active Substance: AZITHROMYCIN DIHYDRATE
     Indication: Toxoplasmosis
     Dosage: 500 MG, 1X/DAY
     Route: 048
     Dates: start: 20251204, end: 20251213
  3. ZITHROMAX [Suspect]
     Active Substance: AZITHROMYCIN DIHYDRATE
     Dosage: 250 MG
     Route: 048
     Dates: start: 20251205, end: 20251213
  4. DARAPRIM [Suspect]
     Active Substance: PYRIMETHAMINE
     Indication: Toxoplasmosis
     Dosage: 100 MG, 1X/DAY
     Route: 048
     Dates: start: 20251205, end: 20251213
  5. DARAPRIM [Suspect]
     Active Substance: PYRIMETHAMINE
     Dosage: 50 MG, FOR 6 WEEKS
     Route: 048
     Dates: start: 20251206, end: 20251213

REACTIONS (1)
  - Rash maculo-papular [Recovering/Resolving]

NARRATIVE: CASE EVENT DATE: 20251213
